FAERS Safety Report 5328224-X (Version None)
Quarter: 2007Q2

REPORT INFORMATION
  Report Type: 
  Country: None (occurrence: None)
  Receive Date: 20070515
  Receipt Date: 20070501
  Transmission Date: 20071010
  Serious: Yes (Hospitalization)
  Sender: FDA-Public Use
  Company Number: 2006BI017682

PATIENT
  Age: 34 Year
  Sex: Female

DRUGS (3)
  1. NATALIZUMAB [Suspect]
     Indication: MULTIPLE SCLEROSIS
     Dosage: 300 MG QW IV
     Route: 042
     Dates: start: 20061114, end: 20061114
  2. BACLOFEN [Concomitant]
  3. DETROL [Concomitant]

REACTIONS (18)
  - ADDISON'S DISEASE [None]
  - BACTERIA URINE IDENTIFIED [None]
  - COMA [None]
  - CONDITION AGGRAVATED [None]
  - CONFUSIONAL STATE [None]
  - DELUSION [None]
  - DEPRESSED MOOD [None]
  - ENCEPHALOPATHY [None]
  - ENTEROCOCCAL INFECTION [None]
  - ESCHERICHIA INFECTION [None]
  - HALLUCINATION [None]
  - HYPOXIC ENCEPHALOPATHY [None]
  - MEMORY IMPAIRMENT [None]
  - MULTIPLE SCLEROSIS [None]
  - PNEUMONIA ASPIRATION [None]
  - REFUSAL OF TREATMENT BY RELATIVE [None]
  - RESPIRATORY FAILURE [None]
  - UROSEPSIS [None]
